FAERS Safety Report 6659093-3 (Version None)
Quarter: 2010Q1

REPORT INFORMATION
  Report Type: 
  Country: None (occurrence: None)
  Receive Date: 20100330
  Receipt Date: 20100319
  Transmission Date: 20100710
  Serious: Yes (Other)
  Sender: FDA-Public Use
  Company Number: BR-PFIZER INC-2010036164

PATIENT
  Age: 73 Year
  Sex: Male
  Weight: 82 kg

DRUGS (2)
  1. XALACOM [Suspect]
     Indication: GLAUCOMA
     Dosage: UNK
     Route: 047
     Dates: start: 20040101
  2. XALATAN [Suspect]
     Indication: GLAUCOMA
     Dosage: 3UG ONCE DAILY (ONE DROP IN EACH EYE)
     Route: 047
     Dates: start: 20000101, end: 20040101

REACTIONS (2)
  - DEMENTIA ALZHEIMER'S TYPE [None]
  - HYPERTENSION [None]
